FAERS Safety Report 24703823 (Version 1)
Quarter: 2024Q4

REPORT INFORMATION
  Report Type: Spontaneous
  Country: SE (occurrence: SE)
  Receive Date: 20241206
  Receipt Date: 20241206
  Transmission Date: 20250115
  Serious: Yes (Life-Threatening, Other)
  Sender: AMGEN
  Company Number: None

PATIENT
  Age: 65 Year
  Sex: Male
  Weight: 98 kg

DRUGS (2)
  1. XGEVA [Suspect]
     Active Substance: DENOSUMAB
     Indication: Metastases to bone
     Dosage: 1 INJECTION EVERY 4TH WEEK
     Route: 058
     Dates: start: 20241114, end: 20241125
  2. XGEVA [Suspect]
     Active Substance: DENOSUMAB
     Indication: Prostate cancer

REACTIONS (3)
  - Hepatic enzyme increased [Unknown]
  - Hypocalcaemia [Recovering/Resolving]
  - Acute kidney injury [Unknown]

NARRATIVE: CASE EVENT DATE: 20241101
